FAERS Safety Report 4550269-8 (Version None)
Quarter: 2005Q1

REPORT INFORMATION
  Report Type: 
  Country: None (occurrence: None)
  Receive Date: 20050112
  Receipt Date: 20041231
  Transmission Date: 20050727
  Serious: Yes (Other)
  Sender: FDA-Public Use
  Company Number: US-NOVOPROD-241417

PATIENT
  Age: 28 Year
  Sex: Male
  Weight: 77 kg

DRUGS (2)
  1. NOVOLOG [Suspect]
     Indication: DIABETES MELLITUS INSULIN-DEPENDENT
     Dosage: 45 IU, QD
     Route: 058
     Dates: start: 20030101
  2. DOAN'S CAPLETS EXTRA STRENGTH [Concomitant]
     Indication: BACK PAIN
     Dates: start: 20041201

REACTIONS (6)
  - BLOOD GLUCOSE INCREASED [None]
  - DEHYDRATION [None]
  - DIARRHOEA [None]
  - GASTROINTESTINAL DISORDER [None]
  - INFLUENZA [None]
  - PHARMACEUTICAL PRODUCT COMPLAINT [None]
